FAERS Safety Report 8047309-0 (Version None)
Quarter: 2012Q1

REPORT INFORMATION
  Report Type: 
  Country: None (occurrence: None)
  Receive Date: 20120116
  Receipt Date: 20120109
  Transmission Date: 20120608
  Serious: Yes (Other)
  Sender: FDA-Public Use
  Company Number: PHHY2012GB001597

PATIENT
  Age: 80 Year
  Sex: Male

DRUGS (10)
  1. NAPROXEN [Concomitant]
     Dosage: UNK
     Dates: start: 20111027, end: 20111209
  2. OMEPRAZOLE [Concomitant]
     Dosage: UNK
     Dates: start: 20111027
  3. TRAMADOL HCL [Concomitant]
     Dosage: UNK
     Dates: start: 20111111, end: 20111126
  4. FENTANYL [Concomitant]
     Dosage: UNK
     Dates: start: 20111115, end: 20111213
  5. OMEPRAZOLE [Concomitant]
     Dosage: UNK
     Dates: start: 20111111, end: 20111209
  6. ALBUTEROL SULFATE AUTOHALER [Concomitant]
     Dosage: UNK
     Dates: start: 20111014, end: 20111015
  7. CODEINE PHOSPHATE [Suspect]
     Dosage: UNK
     Dates: start: 20111201, end: 20111230
  8. CODEINE PHOSPHATE [Suspect]
     Indication: SCIATICA
     Dosage: UNK
     Dates: start: 20111101, end: 20111115
  9. AMITRIPTYLINE HCL [Concomitant]
     Dosage: UNK
     Dates: start: 20110912, end: 20111010
  10. ACETAMINOPHEN [Concomitant]
     Dosage: UNK
     Dates: start: 20111027, end: 20111124

REACTIONS (1)
  - JAUNDICE CHOLESTATIC [None]
